FAERS Safety Report 6504268-7 (Version None)
Quarter: 2009Q4

REPORT INFORMATION
  Report Type: 
  Country: None (occurrence: None)
  Receive Date: 20091217
  Receipt Date: 20091208
  Transmission Date: 20100525
  Serious: Yes (Life-Threatening)
  Sender: FDA-Public Use
  Company Number: FR-TYCO HEALTHCARE/MALLINCKRODT-T200902300

PATIENT
  Age: 58 Year
  Sex: Female

DRUGS (5)
  1. ANAFRANIL CAP [Suspect]
     Dosage: UNK
  2. DEXTROPROPOXYPHENE [Suspect]
     Dosage: UNK
  3. ACETAMINOPHEN [Suspect]
     Dosage: UNK
  4. NOREPINEPHRINE BITARTRATE [Suspect]
     Indication: CARDIAC FAILURE
     Dosage: 3 MG, HR
     Route: 042
  5. EPINEPHRINE [Suspect]
     Indication: CARDIAC FAILURE
     Dosage: 6 MG, HR
     Route: 042

REACTIONS (4)
  - CARDIAC FAILURE [None]
  - INTESTINAL INFARCTION [None]
  - THERAPEUTIC AGENT TOXICITY [None]
  - VASOPLEGIA SYNDROME [None]
